FAERS Safety Report 13983303 (Version 4)
Quarter: 2018Q1

REPORT INFORMATION
  Report Type: Report from Study
  Country: JP (occurrence: JP)
  Receive Date: 20170918
  Receipt Date: 20180109
  Transmission Date: 20180508
  Serious: Yes (Other)
  Sender: FDA-Public Use
  Company Number: JP-MALLINCKRODT-T201703777

PATIENT
  Age: 1 Year
  Sex: Female
  Weight: 3 kg

DRUGS (29)
  1. NITRIC OXIDE. [Suspect]
     Active Substance: NITRIC OXIDE
     Dosage: 20 PPM
     Dates: start: 20170127, end: 20170128
  2. NITRIC OXIDE. [Suspect]
     Active Substance: NITRIC OXIDE
     Dosage: 5 PPM
     Dates: start: 20170129, end: 20170129
  3. VICCILLIN [Suspect]
     Active Substance: AMPICILLIN
     Indication: PERITONEAL LAVAGE
     Dosage: 70 MG, 2 TIMES A DAY
     Route: 042
     Dates: start: 20170127, end: 20170127
  4. PRECEDEX [Concomitant]
     Active Substance: DEXMEDETOMIDINE HYDROCHLORIDE
     Indication: PRODUCT USED FOR UNKNOWN INDICATION
     Dosage: 1.8 UG/HR CONTINUOUS
     Route: 042
     Dates: start: 20170127, end: 20170203
  5. NITRIC OXIDE. [Suspect]
     Active Substance: NITRIC OXIDE
     Dosage: 15 PPM
     Dates: start: 20170127, end: 20170127
  6. NITRIC OXIDE. [Suspect]
     Active Substance: NITRIC OXIDE
     Dosage: 30 PPM
     Dates: start: 20170128, end: 20170128
  7. FAMOTIDINE. [Concomitant]
     Active Substance: FAMOTIDINE
     Indication: PRODUCT USED FOR UNKNOWN INDICATION
     Dosage: 0.7 MG,  2 TIMES A DAY
     Route: 042
     Dates: start: 20170127
  8. SOLU-CORTEF [Concomitant]
     Active Substance: HYDROCORTISONE SODIUM SUCCINATE
     Indication: PRODUCT USED FOR UNKNOWN INDICATION
     Dosage: 30 MG, 2 TIMES A DAY
     Route: 042
     Dates: start: 20170127
  9. NITRIC OXIDE. [Suspect]
     Active Substance: NITRIC OXIDE
     Dosage: 10 PPM
     Dates: start: 20170129, end: 20170129
  10. VICCILLIN [Suspect]
     Active Substance: AMPICILLIN
     Dosage: 70 MG, 4 TIMES A DAY
     Route: 042
     Dates: start: 20170127
  11. BOSMIN [Concomitant]
     Active Substance: EPINEPHRINE
     Indication: PRODUCT USED FOR UNKNOWN INDICATION
     Dosage: 5 UG/HR CONTINUOUS
     Route: 042
     Dates: start: 20170127, end: 20170129
  12. NOVOLIN R [Concomitant]
     Active Substance: INSULIN HUMAN
     Indication: PRODUCT USED FOR UNKNOWN INDICATION
     Dosage: 1 ML/HR CONTINUOUS  (8U WITH 20% SUGAR SOLUTION 50 ML)
     Route: 042
     Dates: start: 20170128, end: 20170128
  13. POTASSIUM CHLORIDE. [Concomitant]
     Active Substance: POTASSIUM CHLORIDE
     Indication: PRODUCT USED FOR UNKNOWN INDICATION
     Dosage: 1 ML/HR G CONTINUOUS
     Route: 042
     Dates: start: 20170128, end: 20170128
  14. NITRIC OXIDE. [Suspect]
     Active Substance: NITRIC OXIDE
     Dosage: 0.5 PPM
     Dates: start: 20170130, end: 20170130
  15. MILRINONE [Concomitant]
     Active Substance: MILRINONE
     Indication: PRODUCT USED FOR UNKNOWN INDICATION
     Dosage: 0.12 MG/HR CONTINUOUS
     Route: 042
     Dates: start: 20170128, end: 20170208
  16. EPOPROSTENOL. [Concomitant]
     Active Substance: EPOPROSTENOL
     Indication: PRODUCT USED FOR UNKNOWN INDICATION
     Dosage: 1 UG/HR CONTINUOUS
     Route: 042
     Dates: start: 20170127, end: 20170127
  17. HEPARIN SALINE [Concomitant]
     Indication: PRODUCT USED FOR UNKNOWN INDICATION
     Dosage: 1 ML/HR CONTINUOUS (600U/24ML)
     Route: 042
     Dates: start: 20170127, end: 20170128
  18. MANNITOL. [Concomitant]
     Active Substance: MANNITOL
     Indication: PRODUCT USED FOR UNKNOWN INDICATION
     Dosage: 0.5 ML/HR CONTINUOUS
     Route: 042
     Dates: start: 20170128, end: 20170129
  19. NITRIC OXIDE. [Suspect]
     Active Substance: NITRIC OXIDE
     Indication: PULMONARY HYPERTENSION
     Dosage: 20 PPM
     Dates: start: 20170127, end: 20170127
  20. NITRIC OXIDE. [Suspect]
     Active Substance: NITRIC OXIDE
     Dosage: 20 PPM
     Dates: start: 20170128, end: 20170129
  21. UROKINASE [Concomitant]
     Active Substance: UROKINASE
     Indication: PRODUCT USED FOR UNKNOWN INDICATION
     Dosage: 2 ML/HR CONTINUOUS ( (2800 U WITH 5% SUGAR SOLUTION 48 ML)
     Route: 042
     Dates: start: 20170127, end: 20170129
  22. ALBUMIN [Concomitant]
     Active Substance: ALBUMIN HUMAN
     Indication: PRODUCT USED FOR UNKNOWN INDICATION
     Dosage: 3 ML/HR CONTINUOUS (25%)
     Route: 042
     Dates: start: 20170127, end: 20170129
  23. FENTANYL. [Concomitant]
     Active Substance: FENTANYL
     Indication: PRODUCT USED FOR UNKNOWN INDICATION
     Dosage: 5.8 UG/HR CONTINUOUS
     Route: 042
     Dates: start: 20170127, end: 20170203
  24. POTASSIUM CHLORIDE. [Concomitant]
     Active Substance: POTASSIUM CHLORIDE
     Dosage: 1.5 ML/HR CONTINUOUS
     Route: 042
     Dates: start: 20170129, end: 20170129
  25. NITRIC OXIDE. [Suspect]
     Active Substance: NITRIC OXIDE
     Dosage: 1 PPM
     Dates: start: 20170129, end: 20170130
  26. INOVAN [Concomitant]
     Active Substance: DOPAMINE HYDROCHLORIDE
     Indication: PRODUCT USED FOR UNKNOWN INDICATION
     Dosage: 0.8 MG/HR CONTINUOUS
     Route: 042
     Dates: start: 20170127, end: 20170210
  27. CALCICOL [Concomitant]
     Active Substance: CALCIUM GLUCONATE
     Indication: PRODUCT USED FOR UNKNOWN INDICATION
     Dosage: 1 ML/HR CONTINUOUS (20ML WITH 5% SUGAR SOLUTION 48 ML)
     Route: 042
     Dates: start: 20170127, end: 20170129
  28. HEPARIN SALINE [Concomitant]
     Dosage: 2 ML/HR CONTINUOUS
     Route: 042
     Dates: start: 20170129, end: 20170129
  29. VECURONIUM [Concomitant]
     Active Substance: VECURONIUM BROMIDE
     Indication: PRODUCT USED FOR UNKNOWN INDICATION
     Dosage: 0.25 MG/HR CONTINUOUS
     Route: 042
     Dates: start: 20170127, end: 20170203

REACTIONS (1)
  - Acute kidney injury [Recovered/Resolved]

NARRATIVE: CASE EVENT DATE: 20170128
